FAERS Safety Report 4652243-X (Version None)
Quarter: 2005Q2

REPORT INFORMATION
  Report Type: 
  Country: None (occurrence: None)
  Receive Date: 20050504
  Receipt Date: 20050210
  Transmission Date: 20051028
  Serious: Yes (Hospitalization, Other)
  Sender: FDA-Public Use
  Company Number: PHBS2005JP02235

PATIENT
  Age: 77 Year
  Sex: Male
  Weight: 47 kg

DRUGS (13)
  1. LOPRESSOR [Suspect]
     Indication: HYPERTENSION
     Dosage: 5 MG, TID
     Route: 048
     Dates: start: 20050120, end: 20050203
  2. PANALDINE [Suspect]
     Dosage: 100 MG, QD
     Route: 048
     Dates: start: 20040908, end: 20050203
  3. LOXONIN [Concomitant]
     Dosage: 180 MG, UNK
     Route: 048
     Dates: start: 20041204, end: 20050203
  4. ASPIRIN [Concomitant]
     Dosage: 100 MG, QD
     Route: 048
     Dates: start: 20040721, end: 20050203
  5. ASPIRIN [Concomitant]
     Dosage: 100 MG, QD
     Route: 048
     Dates: start: 20050219
  6. FRANDOL [Concomitant]
     Dosage: 1 DF/DAY
     Route: 061
     Dates: start: 20041105
  7. LAC B [Concomitant]
     Dosage: 3 G, UNK
     Route: 048
     Dates: start: 20041201
  8. SIGMART [Concomitant]
     Dosage: 1 DF, TID
     Route: 048
     Dates: start: 20041005, end: 20050203
  9. SIGMART [Concomitant]
     Dosage: 1 DF, TID
     Route: 048
     Dates: start: 20050219
  10. SELBEX [Concomitant]
     Dosage: 150 MG, UNK
     Route: 048
     Dates: start: 20041204, end: 20050203
  11. RABEPRAZOLE SODIUM [Concomitant]
     Dosage: 10 MG, QD
     Route: 048
     Dates: start: 20050203, end: 20050203
  12. RABEPRAZOLE SODIUM [Concomitant]
     Dosage: 10 MG, QD
     Dates: start: 20050219
  13. ARTIST [Concomitant]
     Dosage: 2.5 MG, UNK
     Route: 048
     Dates: start: 20050203

REACTIONS (19)
  - ABDOMINAL PAIN [None]
  - ALANINE AMINOTRANSFERASE INCREASED [None]
  - ANOREXIA [None]
  - ASPARTATE AMINOTRANSFERASE INCREASED [None]
  - BILIRUBIN CONJUGATED INCREASED [None]
  - BLOOD ALKALINE PHOSPHATASE INCREASED [None]
  - BLOOD AMYLASE INCREASED [None]
  - BLOOD BILIRUBIN INCREASED [None]
  - BLOOD LACTATE DEHYDROGENASE INCREASED [None]
  - CHOLANGITIS [None]
  - CHOLELITHIASIS [None]
  - DIZZINESS [None]
  - EOSINOPHIL PERCENTAGE INCREASED [None]
  - GALLSTONES IN BILE DUCT REMOVAL [None]
  - GAMMA-GLUTAMYLTRANSFERASE INCREASED [None]
  - LIPASE INCREASED [None]
  - LIVER DISORDER [None]
  - PRURITUS [None]
  - RASH [None]
